FAERS Safety Report 5124300-5 (Version None)
Quarter: 2006Q3

REPORT INFORMATION
  Report Type: 
  Country: None (occurrence: None)
  Receive Date: 20060816
  Receipt Date: 20060505
  Transmission Date: 20061208
  Serious: No
  Sender: FDA-Public Use
  Company Number: US200605001517

PATIENT
  Age: 61 Year
  Sex: Male

DRUGS (3)
  1. CIALIS [Suspect]
     Indication: ERECTILE DYSFUNCTION
     Dosage: 20 MG
  2. SUDAFED 12 HOUR [Concomitant]
  3. ASPIRIN [Concomitant]

REACTIONS (1)
  - EJACULATION FAILURE [None]
